FAERS Safety Report 20950672 (Version 1)
Quarter: 2022Q2

REPORT INFORMATION
  Report Type: Spontaneous
  Country: AT (occurrence: AT)
  Receive Date: 20220613
  Receipt Date: 20220613
  Transmission Date: 20220721
  Serious: Yes (Other)
  Sender: FDA-Public Use
  Company Number: AT-ABBVIE-22K-009-4416610-00

PATIENT

DRUGS (2)
  1. ADALIMUMAB [Suspect]
     Active Substance: ADALIMUMAB
     Indication: Product used for unknown indication
     Dosage: UNK
     Route: 058
     Dates: start: 201910, end: 2021
  2. RINVOQ [Suspect]
     Active Substance: UPADACITINIB
     Indication: Psoriatic arthropathy
     Dosage: UNK
     Route: 048
     Dates: start: 202103

REACTIONS (9)
  - Psoriatic arthropathy [Recovering/Resolving]
  - Intentional product misuse [Unknown]
  - Liver function test increased [Recovered/Resolved]
  - Tendon pain [Unknown]
  - Osteoarthritis [Unknown]
  - Fatigue [Recovering/Resolving]
  - Tendon disorder [Unknown]
  - Drug ineffective [Unknown]
  - Localised infection [Unknown]
